FAERS Safety Report 5384191-4 (Version None)
Quarter: 2007Q3

REPORT INFORMATION
  Report Type: 
  Country: None (occurrence: None)
  Receive Date: 20070711
  Receipt Date: 20070702
  Transmission Date: 20080115
  Serious: Yes (Hospitalization)
  Sender: FDA-Public Use
  Company Number: B0453641A

PATIENT
  Age: 63 Year
  Sex: Female
  Weight: 89 kg

DRUGS (3)
  1. GW679769 [Suspect]
     Route: 048
     Dates: start: 20070104, end: 20070105
  2. ZOFRAN [Suspect]
     Dosage: 8MG PER DAY
     Route: 048
     Dates: start: 20070104, end: 20070105
  3. DEXAMETHASONE 0.5MG TAB [Suspect]
     Dosage: 8MG PER DAY
     Route: 042
     Dates: start: 20070104, end: 20070105

REACTIONS (1)
  - PERIPHERAL ISCHAEMIA [None]
